FAERS Safety Report 17167940 (Version 1)
Quarter: 2019Q4

REPORT INFORMATION
  Report Type: Spontaneous
  Country: US (occurrence: US)
  Receive Date: 20191218
  Receipt Date: 20191218
  Transmission Date: 20200122
  Serious: Yes (Hospitalization)
  Sender: FDA-Public Use
  Company Number: US-ABBVIE-19K-163-3191453-00

PATIENT
  Age: 6 Year
  Sex: Female

DRUGS (1)
  1. ADALIMUMAB [Suspect]
     Active Substance: ADALIMUMAB
     Indication: GRANULOMA SKIN
     Route: 058

REACTIONS (2)
  - Vasculitis [Recovering/Resolving]
  - Acute kidney injury [Unknown]
